FAERS Safety Report 6508213-X (Version None)
Quarter: 2009Q4

REPORT INFORMATION
  Report Type: 
  Country: None (occurrence: None)
  Receive Date: 20091221
  Receipt Date: 20081205
  Transmission Date: 20100525
  Serious: No
  Sender: FDA-Public Use
  Company Number: US-ASTRAZENECA-2008UW27153

PATIENT
  Age: 57 Year
  Sex: Male
  Weight: 113.4 kg

DRUGS (1)
  1. CRESTOR [Suspect]
     Dosage: UNKNOWN
     Route: 048
     Dates: start: 20081114

REACTIONS (1)
  - WEIGHT INCREASED [None]
